FAERS Safety Report 21482858 (Version 6)
Quarter: 2023Q1

REPORT INFORMATION
  Report Type: Spontaneous
  Country: JP (occurrence: JP)
  Receive Date: 20221020
  Receipt Date: 20230325
  Transmission Date: 20230418
  Serious: Yes (Other)
  Sender: FDA-Public Use
  Company Number: JP-UNITED THERAPEUTICS-UNT-2021-024615

PATIENT
  Age: 37 Year
  Sex: Female
  Weight: 39 kg

DRUGS (44)
  1. UNITUXIN [Suspect]
     Active Substance: DINUTUXIMAB
     Indication: Neuroblastoma recurrent
     Dosage: 17.5 MG/M2, CYCLICAL (CYCLE 1)
     Route: 041
     Dates: start: 20211118, end: 20211121
  2. UNITUXIN [Suspect]
     Active Substance: DINUTUXIMAB
     Dosage: 17.5 MG/M2, CYCLICAL (CYCLE 2)
     Route: 041
     Dates: start: 20211220, end: 20211223
  3. UNITUXIN [Suspect]
     Active Substance: DINUTUXIMAB
     Dosage: 17.5 MG/M2, CYCLICAL (CYCLE 3)
     Route: 041
     Dates: start: 20220114, end: 20220117
  4. UNITUXIN [Suspect]
     Active Substance: DINUTUXIMAB
     Dosage: 17.5 MG/M2, CYCLICAL (CYCLE 4)
     Route: 041
     Dates: start: 20220216, end: 20220219
  5. UNITUXIN [Suspect]
     Active Substance: DINUTUXIMAB
     Dosage: 17.5 MG/M2, CYCLICAL (CYCLE 5)
     Route: 041
     Dates: start: 20220312, end: 20220315
  6. UNITUXIN [Suspect]
     Active Substance: DINUTUXIMAB
     Dosage: 17.5 MG/M2, CYCLICAL (CYCLE 6)
     Route: 041
     Dates: start: 20220413, end: 20220416
  7. MORPHINE HYDROCHLORIDE [Suspect]
     Active Substance: MORPHINE HYDROCHLORIDE
     Indication: Pain
     Dosage: 30 MG
     Route: 041
     Dates: start: 20211118, end: 20211118
  8. MORPHINE HYDROCHLORIDE [Suspect]
     Active Substance: MORPHINE HYDROCHLORIDE
     Indication: Prophylaxis
     Dosage: 30 MG
     Route: 041
     Dates: start: 20211119, end: 20211121
  9. MORPHINE HYDROCHLORIDE [Suspect]
     Active Substance: MORPHINE HYDROCHLORIDE
     Dosage: 7.2 MG, QD
     Route: 065
  10. MORPHINE HYDROCHLORIDE [Suspect]
     Active Substance: MORPHINE HYDROCHLORIDE
     Dosage: 7.5 MG, QD
     Route: 065
     Dates: start: 20220114, end: 20220115
  11. MORPHINE HYDROCHLORIDE [Suspect]
     Active Substance: MORPHINE HYDROCHLORIDE
     Dosage: 7.2 MG, QD
     Route: 065
     Dates: start: 20220216, end: 20220219
  12. MORPHINE HYDROCHLORIDE [Suspect]
     Active Substance: MORPHINE HYDROCHLORIDE
     Dosage: 7.5 MG, QD
     Route: 065
     Dates: start: 20220312, end: 20220315
  13. MORPHINE HYDROCHLORIDE [Suspect]
     Active Substance: MORPHINE HYDROCHLORIDE
     Dosage: 7.2 MG, QD
     Route: 041
     Dates: start: 20220413, end: 20220416
  14. TECELEUKIN [Suspect]
     Active Substance: TECELEUKIN
     Indication: Neuroblastoma recurrent
     Dosage: 750000 UNITS/M2
     Route: 041
     Dates: start: 20211213, end: 20211217
  15. TECELEUKIN [Suspect]
     Active Substance: TECELEUKIN
     Dosage: 750000 UNITS/M2
     Route: 041
     Dates: start: 20211220, end: 20211224
  16. TECELEUKIN [Suspect]
     Active Substance: TECELEUKIN
     Dosage: 750000 UNITS/M2
     Route: 041
     Dates: start: 20220209, end: 20220212
  17. TECELEUKIN [Suspect]
     Active Substance: TECELEUKIN
     Dosage: 1000000 UNITS/M2
     Route: 041
     Dates: start: 20220216, end: 20220219
  18. TECELEUKIN [Suspect]
     Active Substance: TECELEUKIN
     Dosage: 750000 UNITS/M2
     Route: 041
     Dates: start: 20220406, end: 20220409
  19. TECELEUKIN [Suspect]
     Active Substance: TECELEUKIN
     Dosage: 1000000 UNITS/M2
     Route: 041
     Dates: start: 20220413, end: 20220416
  20. COVID-19 VACCINE NOS [Suspect]
     Active Substance: COVID-19 VACCINE NOS
     Indication: COVID-19 immunisation
     Dosage: UNK
     Route: 030
     Dates: start: 20220204, end: 20220204
  21. ALDESLEUKIN [Suspect]
     Active Substance: ALDESLEUKIN
     Indication: Neuroblastoma
     Dosage: UNK
     Route: 065
  22. ALDESLEUKIN [Suspect]
     Active Substance: ALDESLEUKIN
     Dosage: UNK
     Route: 041
     Dates: start: 20220209
  23. ALDESLEUKIN [Suspect]
     Active Substance: ALDESLEUKIN
     Dosage: UNK (DAY 3 IN CYCLE 4)
     Route: 041
     Dates: start: 20220211
  24. FILGRASTIM [Concomitant]
     Active Substance: FILGRASTIM
     Indication: Neuroblastoma recurrent
     Dosage: 5 ?G/KG, QD
     Route: 058
     Dates: start: 20211115, end: 20211128
  25. FILGRASTIM [Concomitant]
     Active Substance: FILGRASTIM
     Dosage: 5 ?G/KG, QD
     Route: 058
     Dates: start: 20220111, end: 20220124
  26. FILGRASTIM [Concomitant]
     Active Substance: FILGRASTIM
     Dosage: 5 ?G/KG, QD
     Route: 058
     Dates: start: 20220309, end: 20220322
  27. ACETAMINOPHEN [Concomitant]
     Active Substance: ACETAMINOPHEN
     Indication: Prophylaxis
     Dosage: 40 MG/KG, QD
     Route: 065
     Dates: start: 20211118, end: 20211121
  28. ACETAMINOPHEN [Concomitant]
     Active Substance: ACETAMINOPHEN
     Dosage: 40 MG/KG, QD
     Route: 065
     Dates: start: 20211213, end: 20211217
  29. ACETAMINOPHEN [Concomitant]
     Active Substance: ACETAMINOPHEN
     Dosage: 40 MG/KG, QD
     Route: 065
     Dates: start: 20211220, end: 20211224
  30. ACETAMINOPHEN [Concomitant]
     Active Substance: ACETAMINOPHEN
     Dosage: 40 MG/KG, QD
     Route: 065
     Dates: start: 20220114, end: 20220118
  31. ACETAMINOPHEN [Concomitant]
     Active Substance: ACETAMINOPHEN
     Dosage: 40 MG/KG, QD
     Route: 065
     Dates: start: 20220209, end: 20220213
  32. ACETAMINOPHEN [Concomitant]
     Active Substance: ACETAMINOPHEN
     Dosage: 40 MG/KG, QD
     Route: 065
     Dates: start: 20220216, end: 20220220
  33. ACETAMINOPHEN [Concomitant]
     Active Substance: ACETAMINOPHEN
     Dosage: 40 MG/KG, QD
     Route: 065
     Dates: start: 20220312, end: 20220316
  34. ACETAMINOPHEN [Concomitant]
     Active Substance: ACETAMINOPHEN
     Dosage: 40 MG/KG, QD
     Route: 065
     Dates: start: 20220406, end: 20220410
  35. ACETAMINOPHEN [Concomitant]
     Active Substance: ACETAMINOPHEN
     Dosage: 40 MG/KG, QD
     Route: 065
     Dates: start: 20220413, end: 20220417
  36. HYDROXYZINE HYDROCHLORIDE [Concomitant]
     Active Substance: HYDROXYZINE HYDROCHLORIDE
     Indication: Prophylaxis
     Dosage: 2.4 MG/KG, QD
     Route: 065
     Dates: start: 20211118, end: 20211121
  37. HYDROXYZINE HYDROCHLORIDE [Concomitant]
     Active Substance: HYDROXYZINE HYDROCHLORIDE
     Dosage: 2.4 MG/KG, QD
     Route: 065
     Dates: start: 20211213, end: 20211217
  38. HYDROXYZINE HYDROCHLORIDE [Concomitant]
     Active Substance: HYDROXYZINE HYDROCHLORIDE
     Dosage: 2.4 MG/KG, QD
     Route: 065
     Dates: start: 20211220, end: 20211224
  39. HYDROXYZINE HYDROCHLORIDE [Concomitant]
     Active Substance: HYDROXYZINE HYDROCHLORIDE
     Dosage: 2.4 MG/KG, QD
     Route: 065
     Dates: start: 20220114, end: 20220118
  40. HYDROXYZINE HYDROCHLORIDE [Concomitant]
     Active Substance: HYDROXYZINE HYDROCHLORIDE
     Dosage: 2.4 MG/KG, QD
     Route: 065
     Dates: start: 20220209, end: 20220213
  41. HYDROXYZINE HYDROCHLORIDE [Concomitant]
     Active Substance: HYDROXYZINE HYDROCHLORIDE
     Dosage: 2.4 MG/KG, QD
     Route: 065
     Dates: start: 20220216, end: 20220220
  42. HYDROXYZINE HYDROCHLORIDE [Concomitant]
     Active Substance: HYDROXYZINE HYDROCHLORIDE
     Dosage: 2.4 MG/KG, QD
     Route: 065
     Dates: start: 20220312, end: 20220316
  43. HYDROXYZINE HYDROCHLORIDE [Concomitant]
     Active Substance: HYDROXYZINE HYDROCHLORIDE
     Dosage: 2.4 MG/KG, QD
     Route: 065
     Dates: start: 20220406, end: 20220410
  44. HYDROXYZINE HYDROCHLORIDE [Concomitant]
     Active Substance: HYDROXYZINE HYDROCHLORIDE
     Dosage: 2.4 MG/KG, QD
     Route: 065
     Dates: start: 20220413, end: 20220417

REACTIONS (61)
  - Liver disorder [Unknown]
  - Abdominal pain [Recovered/Resolved]
  - Abdominal distension [Recovered/Resolved]
  - Back pain [Recovered/Resolved]
  - Headache [Recovered/Resolved]
  - C-reactive protein increased [Recovered/Resolved]
  - Aspartate aminotransferase increased [Recovered/Resolved]
  - Alanine aminotransferase increased [Recovered/Resolved]
  - Pyrexia [Recovered/Resolved]
  - Pyrexia [Recovered/Resolved]
  - Face oedema [Recovered/Resolved]
  - Arthralgia [Recovered/Resolved]
  - Non-cardiac chest pain [Recovered/Resolved]
  - Stomatitis [Recovered/Resolved]
  - Aspartate aminotransferase increased [Recovered/Resolved]
  - Blood bilirubin increased [Recovered/Resolved]
  - Platelet count decreased [Recovered/Resolved]
  - Hypoalbuminaemia [Recovered/Resolved]
  - Thirst [Recovered/Resolved]
  - C-reactive protein increased [Recovered/Resolved]
  - Pyrexia [Recovered/Resolved]
  - Platelet count decreased [Recovered/Resolved]
  - Blood alkaline phosphatase increased [Recovered/Resolved]
  - Abdominal pain [Recovered/Resolved]
  - Back pain [Recovered/Resolved]
  - Headache [Recovered/Resolved]
  - Hypoalbuminaemia [Recovered/Resolved]
  - Diplopia [Recovered/Resolved]
  - Diplopia [Recovered/Resolved]
  - Diplopia [Recovered/Resolved]
  - Diplopia [Recovered/Resolved]
  - White blood cell count decreased [Recovered/Resolved]
  - White blood cell count decreased [Recovered/Resolved]
  - Neutrophil count decreased [Unknown]
  - Neutrophil count decreased [Not Recovered/Not Resolved]
  - Pyrexia [Recovered/Resolved]
  - Pyrexia [Recovered/Resolved]
  - Platelet count decreased [Recovered/Resolved]
  - Haemoglobin decreased [Recovered/Resolved]
  - Aspartate aminotransferase increased [Recovered/Resolved]
  - Alanine aminotransferase increased [Recovered/Resolved]
  - Aspartate aminotransferase increased [Recovered/Resolved]
  - Alanine aminotransferase increased [Recovered/Resolved]
  - Hypoalbuminaemia [Recovered/Resolved]
  - Pyrexia [Recovered/Resolved]
  - Platelet count decreased [Recovered/Resolved]
  - Haemoglobin decreased [Recovered/Resolved]
  - Conjunctival hyperaemia [Recovered/Resolved]
  - Pyrexia [Recovered/Resolved]
  - Neutrophil count decreased [Recovered/Resolved]
  - Aspartate aminotransferase increased [Recovered/Resolved]
  - Alanine aminotransferase increased [Recovered/Resolved]
  - Constipation [Recovered/Resolved]
  - Non-cardiac chest pain [Recovered/Resolved]
  - Arthralgia [Recovered/Resolved]
  - Headache [Unknown]
  - Influenza like illness [Unknown]
  - Influenza like illness [Unknown]
  - Arthralgia [Unknown]
  - Chest pain [Unknown]
  - Bone pain [Unknown]

NARRATIVE: CASE EVENT DATE: 20211118
